FAERS Safety Report 11229498 (Version 2)
Quarter: 2015Q3

REPORT INFORMATION
  Report Type: Spontaneous
  Country: SE (occurrence: SE)
  Receive Date: 20150630
  Receipt Date: 20150824
  Transmission Date: 20151125
  Serious: Yes (Congenital Anomaly)
  Sender: FDA-Public Use
  Company Number: PHHY2015SE074289

PATIENT
  Age: 0 Day
  Sex: Female

DRUGS (2)
  1. SERTRALINE [Suspect]
     Active Substance: SERTRALINE HYDROCHLORIDE
     Indication: PRODUCT USED FOR UNKNOWN INDICATION
     Dosage: MOTHER WAS TREATED FROM 01 OCT 2013 AND ONGOING
     Route: 064
     Dates: start: 20140919, end: 20150613
  2. AMLODIPINE [Suspect]
     Active Substance: AMLODIPINE BESYLATE
     Indication: HYPERTENSION
     Dosage: THE MOTHER WAS TREATED FROM 20131201-20141218
     Route: 064
     Dates: start: 20140919, end: 20141218

REACTIONS (1)
  - Limb reduction defect [Unknown]

NARRATIVE: CASE EVENT DATE: 20150613
